FAERS Safety Report 12806968 (Version 1)
Quarter: 2016Q4

REPORT INFORMATION
  Report Type: Spontaneous
  Country: US (occurrence: US)
  Receive Date: 20161003
  Receipt Date: 20161003
  Transmission Date: 20170207
  Serious: Yes (Hospitalization)
  Sender: FDA-Public Use
  Company Number: None

PATIENT
  Age: 1 Year
  Sex: Male
  Weight: 11.25 kg

DRUGS (3)
  1. BABY TEETHING (HYLAND HOMEOPATHIC) [Suspect]
     Active Substance: HOMEOPATHICS
     Indication: PRODUCT USED FOR UNKNOWN INDICATION
     Dosage: QUANTITY:135 TABLET(S);?EVERY 4 HOURS ?
     Route: 048
     Dates: start: 20160506, end: 20160918
  2. KEPPRA [Concomitant]
     Active Substance: LEVETIRACETAM
  3. ZANTAC [Concomitant]
     Active Substance: RANITIDINE HYDROCHLORIDE

REACTIONS (2)
  - Seizure [None]
  - Musculoskeletal stiffness [None]

NARRATIVE: CASE EVENT DATE: 20160918
